FAERS Safety Report 24391763 (Version 3)
Quarter: 2024Q4

REPORT INFORMATION
  Report Type: Spontaneous
  Country: US (occurrence: IN)
  Receive Date: 20241003
  Receipt Date: 20241011
  Transmission Date: 20250115
  Serious: No
  Sender: BRISTOL MYERS SQUIBB
  Company Number: US-BRISTOL-MYERS SQUIBB COMPANY-2024-140444

PATIENT
  Age: 75 Year
  Sex: Female
  Weight: 72.57 kg

DRUGS (5)
  1. ELIQUIS [Suspect]
     Active Substance: APIXABAN
     Indication: Atrial fibrillation
     Route: 048
  2. ELIQUIS [Suspect]
     Active Substance: APIXABAN
     Indication: Ventricular tachycardia
  3. ELIQUIS [Suspect]
     Active Substance: APIXABAN
     Indication: Arrhythmia
  4. CARVEDILOL [Concomitant]
     Active Substance: CARVEDILOL
     Indication: Ventricular tachycardia
  5. CARVEDILOL [Concomitant]
     Active Substance: CARVEDILOL
     Indication: Arrhythmia

REACTIONS (2)
  - Suspected counterfeit product [Unknown]
  - Sleep apnoea syndrome [Unknown]
